FAERS Safety Report 13535399 (Version 2)
Quarter: 2017Q2

REPORT INFORMATION
  Report Type: Report from Study
  Country: US (occurrence: US)
  Receive Date: 20170511
  Receipt Date: 20170519
  Transmission Date: 20170830
  Serious: Yes (Hospitalization, Other)
  Sender: FDA-Public Use
  Company Number: US-GILEAD-2017-0272142

PATIENT
  Age: 76 Year
  Sex: Female
  Weight: 53.6 kg

DRUGS (13)
  1. FISH OIL [Concomitant]
     Active Substance: FISH OIL
  2. AMLODIPINE [Concomitant]
     Active Substance: AMLODIPINE BESYLATE
  3. AMBRISENTAN [Suspect]
     Active Substance: AMBRISENTAN
     Indication: PULMONARY ARTERIAL HYPERTENSION
     Dosage: 10 MG, QD
     Route: 048
     Dates: start: 20170328
  4. LANSOPRAZOLE. [Concomitant]
     Active Substance: LANSOPRAZOLE
  5. MULTIVITAMIN                       /00097801/ [Concomitant]
     Active Substance: VITAMINS
  6. TYVASO [Concomitant]
     Active Substance: TREPROSTINIL
  7. OXYGEN. [Concomitant]
     Active Substance: OXYGEN
  8. ADCIRCA [Concomitant]
     Active Substance: TADALAFIL
  9. ASPIRIN                            /00002701/ [Concomitant]
     Active Substance: ASPIRIN
  10. LIPITOR [Concomitant]
     Active Substance: ATORVASTATIN CALCIUM
  11. AMBRISENTAN [Suspect]
     Active Substance: AMBRISENTAN
     Indication: CONNECTIVE TISSUE DISORDER
     Dosage: 5 UNK, UNK
     Route: 048
     Dates: start: 20170420
  12. LASIX [Concomitant]
     Active Substance: FUROSEMIDE
  13. HYDRALAZINE [Concomitant]
     Active Substance: HYDRALAZINE HYDROCHLORIDE

REACTIONS (15)
  - Polyuria [Unknown]
  - Oedema [Unknown]
  - Dyspepsia [Unknown]
  - Dyspnoea [Not Recovered/Not Resolved]
  - Chest pain [Unknown]
  - Orthopnoea [Unknown]
  - Oedema peripheral [Unknown]
  - Fatigue [Unknown]
  - Joint swelling [Not Recovered/Not Resolved]
  - Oxygen saturation decreased [Not Recovered/Not Resolved]
  - Peripheral swelling [Unknown]
  - Syncope [Unknown]
  - Cardiac failure [Unknown]
  - Rhinorrhoea [Unknown]
  - Palpitations [Unknown]
